FAERS Safety Report 25064006 (Version 1)
Quarter: 2025Q1

REPORT INFORMATION
  Report Type: Spontaneous
  Country: ES (occurrence: ES)
  Receive Date: 20250311
  Receipt Date: 20250311
  Transmission Date: 20250409
  Serious: Yes (Other)
  Sender: ACCORD
  Company Number: ES-Accord-473265

PATIENT
  Age: 36 Year
  Sex: Male

DRUGS (1)
  1. FINASTERIDE [Suspect]
     Active Substance: FINASTERIDE
     Indication: Alopecia
     Route: 048
     Dates: start: 201302, end: 202502

REACTIONS (2)
  - Oligoasthenozoospermia [Unknown]
  - Spermatogenesis abnormal [Unknown]
